FAERS Safety Report 7629035-2 (Version None)
Quarter: 2011Q3

REPORT INFORMATION
  Report Type: 
  Country: None (occurrence: None)
  Receive Date: 20110722
  Receipt Date: 20110713
  Transmission Date: 20111222
  Serious: Yes (Death, Other)
  Sender: FDA-Public Use
  Company Number: JP-MPIJNJ-2011-01751

PATIENT

DRUGS (15)
  1. BISOPROLOL FUMARATE [Concomitant]
     Indication: ATRIAL FIBRILLATION
     Dosage: 5 MG, UNK
     Route: 048
     Dates: start: 20110201
  2. VELCADE [Suspect]
     Indication: MULTIPLE MYELOMA
     Dosage: 1.3 MG/M2, UNK
     Route: 042
     Dates: start: 20110322, end: 20110401
  3. MAXIPIME [Suspect]
     Indication: HYPERTHERMIA
     Dosage: 4 G, UNK
     Route: 042
     Dates: start: 20110404, end: 20110407
  4. THYRADIN [Concomitant]
     Indication: HYPOTHYROIDISM
     Dosage: 75 UG, UNK
     Route: 048
  5. VALTREX [Concomitant]
     Indication: HEPATITIS VIRAL
     Dosage: 0.5 MG, UNK
     Route: 048
  6. VASOLAN                            /00014302/ [Concomitant]
     Indication: ATRIAL FIBRILLATION
     Dosage: 80 MG, UNK
     Route: 048
     Dates: start: 20110316
  7. ASPENON [Concomitant]
     Indication: ATRIAL FIBRILLATION
     Dosage: 40 MG, UNK
     Route: 048
     Dates: start: 20110316
  8. ALOSITOL [Concomitant]
     Indication: HYPERURICAEMIA
     Dosage: 100 MG, UNK
     Route: 048
     Dates: start: 20110201
  9. DEXAMETHASONE SODIUM PHOSPHATE [Concomitant]
     Indication: MULTIPLE MYELOMA
     Dosage: 19.8 MG, UNK
     Route: 042
     Dates: start: 20110322, end: 20110401
  10. ETIZOLAM [Concomitant]
     Indication: INSOMNIA
     Dosage: 2 MG, UNK
     Route: 048
     Dates: start: 20110325
  11. KESELAN [Concomitant]
     Route: 048
  12. BARACLUDE [Concomitant]
     Route: 065
  13. LANSOPRAZOLE [Concomitant]
     Indication: GASTROOESOPHAGEAL REFLUX DISEASE
     Dosage: 30 MG, UNK
     Route: 048
     Dates: start: 20110201
  14. LASIX [Concomitant]
     Indication: RENAL FAILURE
     Dosage: 40 MG, UNK
     Route: 048
     Dates: start: 20110201
  15. ZOVIRAX                            /00587301/ [Concomitant]
     Indication: ANTIVIRAL PROPHYLAXIS
     Dosage: 400 MG, UNK
     Route: 048
     Dates: start: 20110325

REACTIONS (4)
  - RESPIRATORY FAILURE [None]
  - ALTERED STATE OF CONSCIOUSNESS [None]
  - GUILLAIN-BARRE SYNDROME [None]
  - HYPERTHERMIA [None]
